FAERS Safety Report 25052582 (Version 1)
Quarter: 2025Q1

REPORT INFORMATION
  Report Type: Spontaneous
  Country: CA (occurrence: CA)
  Receive Date: 20250307
  Receipt Date: 20250307
  Transmission Date: 20250409
  Serious: Yes (Hospitalization, Other)
  Sender: B BRAUN
  Company Number: CA-B.Braun Medical Inc.-2172501

PATIENT
  Age: 78 Year
  Sex: Female
  Weight: 86 kg

DRUGS (14)
  1. POTASSIUM CHLORIDE [Suspect]
     Active Substance: POTASSIUM CHLORIDE
     Indication: Hypokalaemia
  2. ONDANSETRON [Concomitant]
     Active Substance: ONDANSETRON
  3. SENNA [Concomitant]
     Active Substance: SENNOSIDES
  4. SODIUM PHOSPHATE [Concomitant]
     Active Substance: SODIUM PHOSPHATE
  5. ROSUVASTATIN [Concomitant]
     Active Substance: ROSUVASTATIN
  6. MELATONIN [Concomitant]
     Active Substance: MELATONIN
  7. DIPHENHYDRAMINE HYDROCHLORIDE\LIDOCAINE HYDROCHLORIDE\NYSTATIN [Concomitant]
     Active Substance: DIPHENHYDRAMINE HYDROCHLORIDE\LIDOCAINE HYDROCHLORIDE\NYSTATIN
  8. LANSOPRAZOLE [Concomitant]
     Active Substance: LANSOPRAZOLE
  9. HALOPERIDOL [Concomitant]
     Active Substance: HALOPERIDOL
  10. APIXABAN [Concomitant]
     Active Substance: APIXABAN
  11. POLYETHYLENE GLYCOL 3350 [Concomitant]
     Active Substance: POLYETHYLENE GLYCOL 3350
  12. HYDROMORPHONE [Concomitant]
     Active Substance: HYDROMORPHONE
  13. MAGNESIUM SULFATE [Concomitant]
     Active Substance: MAGNESIUM SULFATE
  14. ACETAMINOPHEN [Concomitant]
     Active Substance: ACETAMINOPHEN

REACTIONS (6)
  - Depressed level of consciousness [Recovered/Resolved]
  - Tachypnoea [Recovered/Resolved]
  - Lethargy [Recovered/Resolved]
  - Hyporesponsive to stimuli [Recovered/Resolved]
  - Hypoxia [Recovered/Resolved]
  - Hyperkalaemia [Recovered/Resolved]
